FAERS Safety Report 8355207-8 (Version None)
Quarter: 2012Q2

REPORT INFORMATION
  Report Type: 
  Country: None (occurrence: None)
  Receive Date: 20120511
  Receipt Date: 20120503
  Transmission Date: 20120825
  Serious: No
  Sender: FDA-Public Use
  Company Number: US-US-EMD SERONO, INC.-7114651

PATIENT
  Sex: Male
  Weight: 108 kg

DRUGS (5)
  1. TRICOR [Concomitant]
     Indication: HYPERLIPIDAEMIA
     Dates: start: 20060718
  2. LIPITOR [Concomitant]
     Indication: HYPERLIPIDAEMIA
     Dates: start: 20040715
  3. EGRIFTA [Suspect]
     Indication: LIPODYSTROPHY ACQUIRED
     Route: 058
     Dates: start: 20111213, end: 20120213
  4. ANDROGEL [Concomitant]
     Indication: HYPERGONADISM
     Dates: start: 20111114
  5. ATRIPTA [Concomitant]
     Indication: ACQUIRED IMMUNODEFICIENCY SYNDROME
     Dates: start: 20061017

REACTIONS (2)
  - GLYCOSYLATED HAEMOGLOBIN INCREASED [None]
  - BLOOD GLUCOSE INCREASED [None]
